FAERS Safety Report 9913935 (Version 1)
Quarter: 2014Q1

REPORT INFORMATION
  Report Type: Spontaneous
  Country: MX (occurrence: None)
  Receive Date: 20140218
  Receipt Date: 20140218
  Transmission Date: 20141002
  Serious: Yes (Death, Hospitalization)
  Sender: FDA-Public Use
  Company Number: IPC201402-000085

PATIENT
  Age: 48 Year
  Sex: Male

DRUGS (5)
  1. ALLOPURINOL [Suspect]
     Indication: RENAL FAILURE CHRONIC
     Dosage: /24H
  2. FUROSEMIDE (FUROSEMIDE)(FUROSEMIDE) [Concomitant]
  3. CALCITRIOL (CALCITRIOL)(CALCITRIOL) [Concomitant]
  4. ENALAPRIL (ENALAPRIL)(ENALAPRIL) [Concomitant]
  5. FERROUS FUMARATE (FERROUS FUMARATE)(FERROUS FUMARATE) [Concomitant]

REACTIONS (2)
  - Drug reaction with eosinophilia and systemic symptoms [None]
  - Acute hepatic failure [None]
